FAERS Safety Report 15230040 (Version 1)
Quarter: 2018Q3

REPORT INFORMATION
  Report Type: Spontaneous
  Country: US (occurrence: US)
  Receive Date: 20180802
  Receipt Date: 20180802
  Transmission Date: 20181010
  Serious: Yes (Other)
  Sender: FDA-Public Use
  Company Number: US-ACCORD-062873

PATIENT
  Age: 58 Year
  Sex: Female
  Weight: 165 kg

DRUGS (13)
  1. DOCETAXEL ACCORD [Suspect]
     Active Substance: DOCETAXEL
     Indication: BREAST CANCER
     Dosage: NO OF CYCLES: 06
     Dates: start: 20150209, end: 20150602
  2. APREPITANT. [Concomitant]
     Active Substance: APREPITANT
     Dosage: STOP AFTER 1 DOSES ?CYCLE C2
     Route: 048
     Dates: start: 20150302
  3. TRASTUZUMAB. [Suspect]
     Active Substance: TRASTUZUMAB
     Indication: BREAST CANCER
     Dosage: NO OF CYCLE: 06
     Route: 042
     Dates: start: 20150209, end: 20150602
  4. NEULASTA [Concomitant]
     Active Substance: PEGFILGRASTIM
     Dosage: GIVEN ONCE AND STOOPED AFTER 1 DOSES
     Route: 058
     Dates: start: 20150210
  5. FOSAPREPITANT DIMEGLUMINE. [Concomitant]
     Active Substance: FOSAPREPITANT DIMEGLUMINE
     Dosage: 620 ML/HR PLACE IN SODIUM CHLORIDE 0.9%, STOP AFTER 1 DOSES
     Route: 042
     Dates: start: 20140209, end: 20140224
  6. BUPROPION. [Concomitant]
     Active Substance: BUPROPION
  7. ALPRAZOLAM. [Concomitant]
     Active Substance: ALPRAZOLAM
  8. ALOXI [Concomitant]
     Active Substance: PALONOSETRON HYDROCHLORIDE
     Dosage: IV PUSHED ONCE, STOP AFTER 1 DOSES CYCLE 02
     Route: 042
     Dates: start: 20150302
  9. ATIVAN [Concomitant]
     Active Substance: LORAZEPAM
     Dosage: IV PUSH ONCE, STOP AFTER 1 DOSES
     Route: 042
     Dates: start: 20150209, end: 20150224
  10. LEVOTHYROXINE. [Concomitant]
     Active Substance: LEVOTHYROXINE
  11. ANASTROZOLE. [Concomitant]
     Active Substance: ANASTROZOLE
     Dosage: STRENGTH: 1 MG
     Route: 048
  12. PARAPLATIN [Suspect]
     Active Substance: CARBOPLATIN
     Indication: BREAST CANCER
     Dosage: NO OF CYCLE: 06
     Route: 042
     Dates: start: 20150209, end: 20150602
  13. DEXAMETHASONE. [Concomitant]
     Active Substance: DEXAMETHASONE
     Dosage: STOP AFTER 1 DOSES
     Route: 048
     Dates: start: 20150302

REACTIONS (1)
  - Alopecia [Not Recovered/Not Resolved]

NARRATIVE: CASE EVENT DATE: 201512
